FAERS Safety Report 6661543-3 (Version None)
Quarter: 2010Q1

REPORT INFORMATION
  Report Type: 
  Country: None (occurrence: None)
  Receive Date: 20100329
  Receipt Date: 20100319
  Transmission Date: 20100710
  Serious: Yes (Hospitalization)
  Sender: FDA-Public Use
  Company Number: 232791J10USA

PATIENT
  Age: 39 Year
  Sex: Female

DRUGS (7)
  1. REBIF [Suspect]
     Indication: MULTIPLE SCLEROSIS
     Dosage: 44 MCG, 3 IN 1 WEEKS, SUBCUTANEOUS
     Route: 058
     Dates: start: 20090720
  2. BACLOFEN [Concomitant]
  3. DEPAKOTE [Concomitant]
  4. AMBIEN CR [Concomitant]
  5. CYMBALTA [Concomitant]
  6. UNSPECIFIED BIRTH CONTROL PILL (ALL OTHER THERAPEUTIC PRODUCTS) [Concomitant]
  7. GABAPENTIN [Concomitant]

REACTIONS (13)
  - CONVULSION [None]
  - DYSGEUSIA [None]
  - DYSURIA [None]
  - FEELING COLD [None]
  - HYPERTENSION [None]
  - HYPOTHYROIDISM [None]
  - IMMOBILE [None]
  - PAIN [None]
  - PALPITATIONS [None]
  - PARAESTHESIA [None]
  - SENSORY LOSS [None]
  - TREMOR [None]
  - WEIGHT INCREASED [None]
